FAERS Safety Report 16773028 (Version 1)
Quarter: 2019Q3

REPORT INFORMATION
  Report Type: Spontaneous
  Country: ID (occurrence: ID)
  Receive Date: 20190904
  Receipt Date: 20190904
  Transmission Date: 20191005
  Serious: Yes (Hospitalization, Other)
  Sender: FDA-Public Use
  Company Number: ID-ASTRAZENECA-2019SE76812

PATIENT
  Sex: Female

DRUGS (2)
  1. IRESSA [Suspect]
     Active Substance: GEFITINIB
     Dosage: UNKNOWN
     Route: 048
  2. TAGRISSO [Suspect]
     Active Substance: OSIMERTINIB
     Indication: NON-SMALL CELL LUNG CANCER
     Route: 048

REACTIONS (9)
  - Weight decreased [Recovered/Resolved]
  - Diarrhoea [Recovered/Resolved]
  - Cough [Unknown]
  - Gastritis [Recovered/Resolved]
  - Malignant neoplasm progression [Unknown]
  - Nausea [Unknown]
  - Paronychia [Recovered/Resolved]
  - Throat irritation [Unknown]
  - Stomatitis [Recovered/Resolved]
